FAERS Safety Report 7394324-6 (Version None)
Quarter: 2011Q2

REPORT INFORMATION
  Report Type: 
  Country: None (occurrence: None)
  Receive Date: 20110405
  Receipt Date: 20110328
  Transmission Date: 20111010
  Serious: Yes (Hospitalization)
  Sender: FDA-Public Use
  Company Number: US-ROCHE-748668

PATIENT
  Sex: Female

DRUGS (24)
  1. PANTOPRAZOLE [Concomitant]
     Dates: start: 20101205
  2. INSULIN [Concomitant]
     Dosage: DRUG: INSULIN SLIDING SCALE
  3. MOBIC [Concomitant]
     Dates: start: 20101014
  4. METOCLOPRAMIDE [Concomitant]
  5. ROSUVASTATIN [Concomitant]
     Dates: start: 20101206
  6. CRESTOR [Concomitant]
     Dates: start: 20100920
  7. MICAFUNGIN [Concomitant]
     Dosage: DRUG: MICAFUNGIN SODIUM
     Dates: start: 20101228
  8. ZOLPIDEM [Concomitant]
  9. TIGECYCLINE [Concomitant]
     Dates: start: 20110105
  10. ONDANSETRON [Concomitant]
  11. LIDODERM [Concomitant]
     Dates: start: 20091106
  12. CALCIUM [Concomitant]
     Dates: start: 20080805
  13. LISINOPRIL [Concomitant]
     Dates: start: 20100310
  14. METFORMIN [Concomitant]
     Dates: start: 20101117
  15. ASPIRIN [Concomitant]
     Dates: start: 20091216
  16. PIPERACILLIN AND TAZOBACTAM [Concomitant]
     Dates: start: 20101228
  17. MYCOPHENOLATE MOFETIL [Suspect]
     Route: 048
     Dates: start: 20080730
  18. AMITRIPTYLINE [Concomitant]
     Dates: start: 20090304
  19. FLUOXETINE [Concomitant]
     Dates: start: 20100503
  20. DAPTOMYCIN [Concomitant]
     Dates: start: 20101228
  21. MEROPENEM [Concomitant]
  22. BELATACEPT [Suspect]
     Route: 042
     Dates: start: 20080729
  23. BYETTA [Concomitant]
     Dates: start: 20101112
  24. HYDROMORPHONE HCL [Concomitant]
     Dates: start: 20101228

REACTIONS (9)
  - DIARRHOEA [None]
  - URINARY TRACT INFECTION [None]
  - HYPOTENSION [None]
  - ABSCESS LIMB [None]
  - POST PROCEDURAL BILE LEAK [None]
  - BILIARY TRACT DISORDER [None]
  - ABDOMINAL PAIN [None]
  - BACK PAIN [None]
  - RENAL FAILURE ACUTE [None]
